FAERS Safety Report 10080933 (Version 1)
Quarter: 2014Q2

REPORT INFORMATION
  Report Type: Spontaneous
  Country: US (occurrence: None)
  Receive Date: 20140414
  Receipt Date: 20140414
  Transmission Date: 20141212
  Serious: Yes (Hospitalization)
  Sender: FDA-Public Use
  Company Number: 7279823

PATIENT
  Age: 78 Year
  Sex: Male

DRUGS (1)
  1. LEVOTHYROXINE [Suspect]
     Indication: AUTOIMMUNE THYROIDITIS

REACTIONS (4)
  - Diffuse large B-cell lymphoma [None]
  - Dyspnoea [None]
  - Dysphagia [None]
  - Heart rate irregular [None]
